FAERS Safety Report 5363956-9 (Version None)
Quarter: 2007Q2

REPORT INFORMATION
  Report Type: 
  Country: None (occurrence: None)
  Receive Date: 20070530
  Receipt Date: 20070108
  Transmission Date: 20071010
  Serious: No
  Sender: FDA-Public Use
  Company Number: 2007PV028038

PATIENT
  Age: 65 Year
  Sex: Female
  Weight: 81.1939 kg

DRUGS (6)
  1. BYETTA [Suspect]
     Indication: DIABETES MELLITUS NON-INSULIN-DEPENDENT
     Dosage: 5 MCG;BID;SC 5MCG;BID;SC
     Route: 058
     Dates: start: 20061125, end: 20060101
  2. BYETTA [Suspect]
     Indication: DIABETES MELLITUS NON-INSULIN-DEPENDENT
     Dosage: 5 MCG;BID;SC 5MCG;BID;SC
     Route: 058
     Dates: start: 20060101
  3. AMARYL [Suspect]
     Indication: DIABETES MELLITUS NON-INSULIN-DEPENDENT
     Dosage: 4 MG;QPM;PO 4 MG;QAM;PO 4 MG;BID;PO
     Route: 048
     Dates: end: 20061101
  4. AMARYL [Suspect]
     Indication: DIABETES MELLITUS NON-INSULIN-DEPENDENT
     Dosage: 4 MG;QPM;PO 4 MG;QAM;PO 4 MG;BID;PO
     Route: 048
     Dates: start: 20061101, end: 20070106
  5. AMARYL [Suspect]
     Indication: DIABETES MELLITUS NON-INSULIN-DEPENDENT
     Dosage: 4 MG;QPM;PO 4 MG;QAM;PO 4 MG;BID;PO
     Route: 048
     Dates: start: 20070108
  6. HYDROCODONE BITARTRATE [Concomitant]

REACTIONS (7)
  - BLOOD GLUCOSE DECREASED [None]
  - BLOOD GLUCOSE INCREASED [None]
  - BUNION OPERATION [None]
  - DECREASED APPETITE [None]
  - DYSPEPSIA [None]
  - NAUSEA [None]
  - PROCEDURAL PAIN [None]
